FAERS Safety Report 21370912 (Version 1)
Quarter: 2022Q3

REPORT INFORMATION
  Report Type: Report from Study
  Country: CA (occurrence: CA)
  Receive Date: 20220923
  Receipt Date: 20220923
  Transmission Date: 20221027
  Serious: Yes (Other)
  Sender: FDA-Public Use
  Company Number: CA-BRISTOL-MYERS SQUIBB COMPANY-2022-060497

PATIENT
  Age: 61 Year
  Sex: Female
  Weight: 68 kg

DRUGS (11)
  1. ORENCIA [Suspect]
     Active Substance: ABATACEPT
     Indication: Rheumatoid arthritis
     Dosage: ASSOCIATED INFUSION DATE: 19-MAY-2022, LOT#: ABZ8679, EXPIRY DATE: 31-MAY-2024??ASSOCIATED INFUSION
     Route: 042
     Dates: start: 20071128
  2. AREDIA [Concomitant]
     Active Substance: PAMIDRONATE DISODIUM
     Route: 042
  3. METHOTREXATE SODIUM [Concomitant]
     Active Substance: METHOTREXATE SODIUM
     Indication: Product used for unknown indication
     Route: 065
  4. REMICADE [Concomitant]
     Active Substance: INFLIXIMAB
     Indication: Product used for unknown indication
     Route: 065
  5. PREDNISONE [Concomitant]
     Active Substance: PREDNISONE
  6. ACLASTA [Concomitant]
     Active Substance: ZOLEDRONIC ACID
  7. ASACOL [Concomitant]
     Active Substance: MESALAMINE
  8. CELECOXIB [Concomitant]
     Active Substance: CELECOXIB
  9. PREVACID [Concomitant]
     Active Substance: LANSOPRAZOLE
  10. FOLIC ACID [Concomitant]
     Active Substance: FOLIC ACID
  11. TYLENOL [Concomitant]
     Active Substance: ACETAMINOPHEN

REACTIONS (7)
  - Pneumonia [Unknown]
  - Arthralgia [Unknown]
  - Back pain [Unknown]
  - Inappropriate schedule of product administration [Unknown]
  - Weight increased [Not Recovered/Not Resolved]
  - Blood pressure systolic increased [Recovered/Resolved]
  - Tuberculosis [Unknown]

NARRATIVE: CASE EVENT DATE: 20220101
